FAERS Safety Report 10411940 (Version 2)
Quarter: 2014Q3

REPORT INFORMATION
  Report Type: Spontaneous
  Country: JP (occurrence: JP)
  Receive Date: 20140827
  Receipt Date: 20140905
  Transmission Date: 20150326
  Serious: Yes (Hospitalization)
  Sender: FDA-Public Use
  Company Number: JP-SA-2014SA114029

PATIENT
  Sex: Male

DRUGS (2)
  1. SOLOSTAR [Concomitant]
     Active Substance: DEVICE
  2. LANTUS [Suspect]
     Active Substance: INSULIN GLARGINE
     Dosage: DOSE-3 TO 4 UNITS DOSE:3 UNIT(S)
     Route: 058
     Dates: start: 20140817

REACTIONS (2)
  - Drug administration error [Unknown]
  - Hypoglycaemic unconsciousness [Unknown]

NARRATIVE: CASE EVENT DATE: 20140817
